FAERS Safety Report 7392679-X (Version None)
Quarter: 2011Q1

REPORT INFORMATION
  Report Type: 
  Country: None (occurrence: None)
  Receive Date: 20110330
  Receipt Date: 20110330
  Transmission Date: 20110831
  Serious: Yes (Life-Threatening, Hospitalization)
  Sender: FDA-Public Use
  Company Number: None

PATIENT
  Age: 84 Year
  Sex: Male
  Weight: 97 kg

DRUGS (1)
  1. ZOLPIDEM [Suspect]
     Indication: INSOMNIA
     Dosage: 10 MG ONCE PO
     Route: 048
     Dates: start: 20110212, end: 20110212

REACTIONS (7)
  - ATRIAL FIBRILLATION [None]
  - RESPIRATORY FAILURE [None]
  - HYPERCAPNIA [None]
  - MENTAL STATUS CHANGES [None]
  - OLIGURIA [None]
  - FLUID OVERLOAD [None]
  - ACIDOSIS [None]
